FAERS Safety Report 25718229 (Version 3)
Quarter: 2025Q4

REPORT INFORMATION
  Report Type: Report from Study
  Country: CA (occurrence: CA)
  Receive Date: 20250822
  Receipt Date: 20251002
  Transmission Date: 20260117
  Serious: Yes (Other)
  Sender: Alvotech
  Company Number: CA-JAMP PHARMA CORPORATION-2025-JAM-CA-01413

PATIENT
  Sex: Female
  Weight: 77.5 kg

DRUGS (2)
  1. SIMLANDI [Suspect]
     Active Substance: ADALIMUMAB-RYVK
     Indication: Juvenile idiopathic arthritis
     Dosage: 40 MG WEEKLY
     Route: 058
  2. SIMLANDI [Suspect]
     Active Substance: ADALIMUMAB-RYVK
     Indication: Juvenile idiopathic arthritis
     Dosage: UNK, EVERY 2 WEEKS
     Route: 058
     Dates: start: 20221026

REACTIONS (5)
  - Juvenile idiopathic arthritis [Unknown]
  - Fear of injection [Unknown]
  - Drug level below therapeutic [Unknown]
  - Off label use [Unknown]
  - Injection site pain [Unknown]
